FAERS Safety Report 13883098 (Version 2)
Quarter: 2017Q3

REPORT INFORMATION
  Report Type: Spontaneous
  Country: HR (occurrence: HR)
  Receive Date: 20170818
  Receipt Date: 20170822
  Transmission Date: 20171127
  Serious: Yes (Hospitalization, Other)
  Sender: FDA-Public Use
  Company Number: HR-009507513-1708HRV007497

PATIENT
  Age: 55 Year
  Sex: Female
  Weight: 70 kg

DRUGS (2)
  1. EMEND [Suspect]
     Active Substance: APREPITANT
     Indication: PROPHYLAXIS OF NAUSEA AND VOMITING
     Dosage: 8 MG; 1 TABLET PER DAY , 3 DAYS
     Route: 048
     Dates: start: 20170715, end: 20170718
  2. DEXAMETHASON KRKA [Suspect]
     Active Substance: DEXAMETHASONE
     Indication: PROPHYLAXIS OF NAUSEA AND VOMITING
     Dosage: 8 MG, QD
     Route: 048
     Dates: start: 20170715, end: 20170718

REACTIONS (4)
  - Abdominal pain upper [Recovered/Resolved]
  - Acne [Recovered/Resolved]
  - Erythema [Recovered/Resolved]
  - Loss of consciousness [Recovered/Resolved]

NARRATIVE: CASE EVENT DATE: 20170718
